FAERS Safety Report 6473193-2 (Version None)
Quarter: 2009Q4

REPORT INFORMATION
  Report Type: 
  Country: None (occurrence: None)
  Receive Date: 20091204
  Receipt Date: 20080829
  Transmission Date: 20100525
  Serious: Yes (Hospitalization, Other)
  Sender: FDA-Public Use
  Company Number: GB-ELI_LILLY_AND_COMPANY-GB200805003094

PATIENT

DRUGS (12)
  1. ZYPREXA [Suspect]
     Dosage: 20 MG, DAILY (1/D)
     Route: 064
  2. CLONAZEPAM [Concomitant]
     Dosage: 0.5 MG, DAILY (1/D)
     Route: 064
  3. FOLIC ACID [Concomitant]
     Dosage: 500 UG, DAILY (1/D)
     Route: 064
  4. HARTMANN'S SOLUTION [Concomitant]
     Dosage: 1 LITER, DAILY (1/D)
     Route: 064
  5. ISOFLURANE [Concomitant]
     Dosage: UNK, UNKNOWN
     Route: 064
  6. LACTULOSE [Concomitant]
     Dosage: UNK, UNKNOWN
     Route: 064
  7. CAMCOLIT [Concomitant]
     Dosage: 1.7 G, DAILY (1/D)
     Route: 064
  8. METOCLOPRAMIDE [Concomitant]
     Dosage: 10 MG, DAILY (1/D)
     Route: 064
  9. RANITIDINE [Concomitant]
     Dosage: 50 MG, DAILY (1/D)
     Route: 064
  10. SODIUM CITRATE [Concomitant]
     Dosage: 30 ML, DAILY (1/D)
     Route: 064
  11. SUCCINYLCHOLINE CHLORIDE [Concomitant]
     Dosage: 100 MG, DAILY (1/D)
     Route: 064
  12. THIOPENTAL SODIUM [Concomitant]
     Dosage: 250 MG, DAILY (1/D)
     Route: 064

REACTIONS (5)
  - CONVULSION [None]
  - DRUG EXPOSURE DURING PREGNANCY [None]
  - PREMATURE BABY [None]
  - PULMONARY HYPERTENSION [None]
  - THERAPEUTIC AGENT TOXICITY [None]
